FAERS Safety Report 9292390 (Version 1)
Quarter: 2013Q2

REPORT INFORMATION
  Report Type: Spontaneous
  Country: BR (occurrence: BR)
  Receive Date: 20130516
  Receipt Date: 20130516
  Transmission Date: 20140414
  Serious: Yes (Other)
  Sender: FDA-Public Use
  Company Number: BR-AMGEN-BRASP2013034094

PATIENT
  Age: 73 Year
  Sex: Female
  Weight: 52 kg

DRUGS (5)
  1. ENBREL [Suspect]
     Indication: RHEUMATOID ARTHRITIS
     Dosage: 50 MG, ONCE WEEKLY
     Route: 058
     Dates: start: 201101, end: 201212
  2. PARACETAMOL [Concomitant]
     Indication: PAIN
     Dosage: 750MG
  3. OMEPRAZOLE [Concomitant]
     Indication: GASTRIC DISORDER
     Dosage: 1 UNSPECIFIED IF CAPSULE OR TABLET, IN THE MORING
  4. AAS [Concomitant]
     Indication: BLOOD DISORDER
     Dosage: 1 UNSPECIFIED IF CAPSULE OR TABLET, 1X/DAY
  5. OSTEOFIX                           /01029601/ [Concomitant]
     Indication: BONE DISORDER
     Dosage: UNK

REACTIONS (4)
  - Pain [Not Recovered/Not Resolved]
  - Skin papilloma [Unknown]
  - Muscle spasticity [Unknown]
  - Sepsis [Unknown]
